FAERS Safety Report 7484253-1 (Version None)
Quarter: 2011Q2

REPORT INFORMATION
  Report Type: 
  Country: None (occurrence: None)
  Receive Date: 20110513
  Receipt Date: 20110513
  Transmission Date: 20111010
  Serious: Yes (Hospitalization)
  Sender: FDA-Public Use
  Company Number: None

PATIENT
  Age: 87 Year
  Sex: Female
  Weight: 85 kg

DRUGS (15)
  1. MULTI-VITAMIN [Concomitant]
  2. AMIODARONE HCL [Concomitant]
  3. DEXAMETHASONE [Concomitant]
  4. COUMADIN [Suspect]
     Indication: ATRIAL FIBRILLATION
     Dosage: 3 MG 1 TABLET DAILY PO  CHRONIC
     Route: 048
  5. MAGIC MOUTHWASH [Concomitant]
  6. FLUCONAZOLE [Suspect]
     Indication: CANDIDIASIS
     Dosage: PO
     Route: 047
  7. LUMIGAN [Concomitant]
  8. SYNTHROID [Concomitant]
  9. CALCIUM CARBONATE [Concomitant]
  10. FISH OIL [Concomitant]
  11. NEPTAZANE [Concomitant]
  12. FLUCONAZOLE [Concomitant]
  13. VITAMIN B-12 [Concomitant]
  14. VASOTEC [Concomitant]
  15. PROTONIX [Concomitant]

REACTIONS (6)
  - HAEMATURIA [None]
  - INTERNATIONAL NORMALISED RATIO [None]
  - CONTUSION [None]
  - ASTHENIA [None]
  - HAEMORRHAGE [None]
  - CANDIDIASIS [None]
